FAERS Safety Report 9416543 (Version 1)
Quarter: 2013Q3

REPORT INFORMATION
  Report Type: Spontaneous
  Country: FR (occurrence: FR)
  Receive Date: 20130724
  Receipt Date: 20130724
  Transmission Date: 20140515
  Serious: Yes (Hospitalization)
  Sender: FDA-Public Use
  Company Number: FR-JNJFOC-20130710518

PATIENT
  Age: 74 Year
  Sex: Female

DRUGS (8)
  1. XARELTO [Suspect]
     Indication: ARRHYTHMIA
     Route: 048
     Dates: start: 20130121, end: 20130211
  2. XARELTO [Suspect]
     Indication: ATRIAL FIBRILLATION
     Route: 048
     Dates: start: 20130121, end: 20130211
  3. CORDARONE [Suspect]
     Indication: ARRHYTHMIA
     Route: 048
     Dates: start: 20121020, end: 20130118
  4. CORDARONE [Suspect]
     Indication: ATRIAL FIBRILLATION
     Route: 048
     Dates: start: 20121020, end: 20130118
  5. FLUINDIONE [Suspect]
     Indication: ARRHYTHMIA
     Route: 048
     Dates: start: 20121020, end: 20130121
  6. FLUINDIONE [Suspect]
     Indication: ATRIAL FIBRILLATION
     Route: 048
     Dates: start: 20121020, end: 20130121
  7. FLECAINE [Suspect]
     Indication: ARRHYTHMIA
     Route: 048
     Dates: start: 20130118, end: 20130209
  8. FLECAINE [Suspect]
     Indication: ATRIAL FIBRILLATION
     Route: 048
     Dates: start: 20130118, end: 20130209

REACTIONS (1)
  - Interstitial lung disease [Recovering/Resolving]
